FAERS Safety Report 6556553-0 (Version None)
Quarter: 2010Q1

REPORT INFORMATION
  Report Type: 
  Country: None (occurrence: None)
  Receive Date: 20100128
  Receipt Date: 20091228
  Transmission Date: 20100710
  Serious: No
  Sender: FDA-Public Use
  Company Number: US-BAYER-200939085NA

PATIENT
  Age: 81 Year
  Sex: Male
  Weight: 83 kg

DRUGS (6)
  1. ULTRAVIST (PHARMACY BULK) [Suspect]
     Indication: COMPUTERISED TOMOGRAM THORAX
     Dosage: TOTAL DAILY DOSE: 100 ML  UNIT DOSE: 200 ML
     Route: 042
     Dates: start: 20091103, end: 20091103
  2. PRILOSEC [Concomitant]
  3. DIOVAN [Concomitant]
  4. WELLBUTRIN [Concomitant]
  5. ASPIRIN [Concomitant]
  6. LIPITOR [Concomitant]

REACTIONS (2)
  - ERYTHEMA [None]
  - URTICARIA [None]
